FAERS Safety Report 13763699 (Version 1)
Quarter: 2017Q3

REPORT INFORMATION
  Report Type: Spontaneous
  Country: GR (occurrence: GR)
  Receive Date: 20170718
  Receipt Date: 20170718
  Transmission Date: 20171127
  Serious: Yes (Other)
  Sender: FDA-Public Use
  Company Number: GR-009507513-1707GRC004174

PATIENT
  Age: 62 Year
  Sex: Female
  Weight: 85 kg

DRUGS (8)
  1. EZETIMIBE. [Suspect]
     Active Substance: EZETIMIBE
     Dosage: 10 MG, UNK
     Dates: start: 201703, end: 201705
  2. LAPRAZOL [Concomitant]
     Active Substance: LANSOPRAZOLE
     Dosage: 1 DF, QD
  3. SALOSPIR [Concomitant]
     Active Substance: ASPIRIN
     Dosage: 1 DF, QD
  4. CARVEDILEN [Concomitant]
     Dosage: 1 DF, BID
  5. BRILIQUE [Concomitant]
     Active Substance: TICAGRELOR
     Dosage: 1 DF, BID
  6. ATORVASTATIN [Suspect]
     Active Substance: ATORVASTATIN
     Dosage: 40 MG, UNK
     Dates: start: 201703, end: 201705
  7. COVERSYL (PERINDOPRIL ARGININE) [Concomitant]
     Active Substance: PERINDOPRIL
     Dosage: 1 DF, BID
  8. ATORVASTATIN [Suspect]
     Active Substance: ATORVASTATIN
     Dates: start: 201703, end: 201705

REACTIONS (1)
  - Hepatotoxicity [Unknown]

NARRATIVE: CASE EVENT DATE: 201703
